FAERS Safety Report 18968516 (Version 1)
Quarter: 2021Q1

REPORT INFORMATION
  Report Type: Report from Study
  Country: GB (occurrence: GB)
  Receive Date: 20210304
  Receipt Date: 20210304
  Transmission Date: 20210420
  Serious: Yes (Other)
  Sender: FDA-Public Use
  Company Number: GB-PFIZER INC-2021210819

PATIENT
  Sex: Female

DRUGS (3)
  1. CARBOPLATIN. [Suspect]
     Active Substance: CARBOPLATIN
     Indication: BRAIN STEM GLIOMA
     Dosage: 0.18 MG/ML, CYCLIC, 2 CYCLES
  2. CARBOPLATIN. [Suspect]
     Active Substance: CARBOPLATIN
     Dosage: 0.12 MG/ML, CYCLIC, 2 CYCLES
  3. SODIUM VALPROATE [Suspect]
     Active Substance: VALPROATE SODIUM
     Indication: BRAIN STEM GLIOMA
     Dosage: 14.4 MG/ML, 2 CYCLIC

REACTIONS (1)
  - VIth nerve paralysis [Unknown]
